FAERS Safety Report 9803346 (Version 3)
Quarter: 2014Q2

REPORT INFORMATION
  Report Type: Spontaneous
  Country: DE (occurrence: DE)
  Receive Date: 20140108
  Receipt Date: 20140403
  Transmission Date: 20141212
  Serious: Yes (Death)
  Sender: FDA-Public Use
  Company Number: PHHY2014DE001554

PATIENT
  Age: 44 Year
  Sex: Male

DRUGS (3)
  1. SIMULECT [Suspect]
     Indication: GRAFT VERSUS HOST DISEASE
     Dosage: 20 MG, QID,  FOUR TIMES DAILY
  2. SIMULECT [Suspect]
     Indication: LEUKAEMIA
  3. SIMULECT [Suspect]
     Indication: OFF LABEL USE

REACTIONS (4)
  - Chronic graft versus host disease [Fatal]
  - Infection [Fatal]
  - Eye infection fungal [Fatal]
  - Blindness [Fatal]
